FAERS Safety Report 23321620 (Version 3)
Quarter: 2024Q1

REPORT INFORMATION
  Report Type: Report from Study
  Country: CN (occurrence: CN)
  Receive Date: 20231220
  Receipt Date: 20240122
  Transmission Date: 20240410
  Serious: No
  Sender: FDA-Public Use
  Company Number: CN-PFIZER INC-PV202300204013

PATIENT
  Age: 94 Year
  Sex: Male
  Weight: 60 kg

DRUGS (9)
  1. NIRMATRELVIR\RITONAVIR [Suspect]
     Active Substance: NIRMATRELVIR\RITONAVIR
     Indication: COVID-19
     Dosage: [NIRMATRELVIR 150 MG]/[RITONAVIR 100 MG], 2X/DAY (BID)
     Route: 048
     Dates: start: 20220430, end: 20220513
  2. ATORVASTATIN CALCIUM [Concomitant]
     Active Substance: ATORVASTATIN CALCIUM
     Indication: Prophylaxis
     Dosage: UNK
     Route: 048
     Dates: start: 20220429, end: 20220513
  3. ASPIRIN [Concomitant]
     Active Substance: ASPIRIN
     Indication: Prophylaxis
     Dosage: ENTERIC-COATED TABLETS
     Route: 048
     Dates: start: 20220429, end: 20220513
  4. CITICOLINE SODIUM [Concomitant]
     Active Substance: CITICOLINE SODIUM
     Indication: Prophylaxis
     Dosage: UNK
     Route: 048
     Dates: start: 20220429, end: 20220513
  5. ISOSORBIDE MONONITRATE [Concomitant]
     Active Substance: ISOSORBIDE MONONITRATE
     Indication: Prophylaxis
     Dosage: UNK
     Route: 048
     Dates: start: 20220429, end: 20220513
  6. AMLODIPINE BESYLATE [Concomitant]
     Active Substance: AMLODIPINE BESYLATE
     Indication: Prophylaxis
     Dosage: UNK
     Route: 048
     Dates: start: 20220429, end: 20220513
  7. HEPARIN CALCIUM [Concomitant]
     Active Substance: HEPARIN CALCIUM
     Indication: Anticoagulant therapy
     Dosage: UNK
     Route: 058
     Dates: start: 20220501, end: 20220513
  8. OXYGEN [Concomitant]
     Active Substance: OXYGEN
     Indication: COVID-19 treatment
     Dosage: UNK
     Route: 055
     Dates: start: 20220506, end: 20220513
  9. GLYCERIN [Concomitant]
     Active Substance: GLYCERIN
     Indication: Laxative supportive care
     Dosage: UNK
     Route: 050
     Dates: start: 20220502

REACTIONS (1)
  - Overdose [Unknown]
